FAERS Safety Report 8376505-8 (Version None)
Quarter: 2012Q2

REPORT INFORMATION
  Report Type: 
  Country: None (occurrence: None)
  Receive Date: 20120522
  Receipt Date: 20120516
  Transmission Date: 20120825
  Serious: Yes (Hospitalization)
  Sender: FDA-Public Use
  Company Number: US-BAYER-2012-014475

PATIENT
  Age: 27 Year
  Sex: Female

DRUGS (35)
  1. METFORMIN HCL [Concomitant]
     Dosage: 500 MG, BID
     Route: 048
  2. PREDNISONE [Concomitant]
     Dosage: ONE DAILY
     Route: 048
  3. FAMOTIDINE [Concomitant]
     Dosage: 20 MG, BID
     Route: 048
  4. ZITHROMAX [Concomitant]
     Dosage: UNK
     Route: 048
     Dates: start: 20100401
  5. AZITHROMYCIN [Concomitant]
     Dosage: 250 MG, 1 DAILY
     Route: 048
  6. PREDNISONE [Concomitant]
     Dosage: 20 MG, DAILY
     Route: 048
  7. PATANASE [Concomitant]
     Dosage: 0.6 %, 2 SPRAYS IN EACH NOSTRIL BID
     Route: 045
  8. BENADRYL [Concomitant]
     Indication: SNEEZING
     Dosage: 50 MG, UNK
     Route: 048
     Dates: start: 20100412
  9. XOPENEX [Concomitant]
     Dosage: UNK
     Dates: start: 20100407
  10. PROAIR HFA [Concomitant]
     Dosage: 90 ?G, UNK
  11. PREDNISONE [Concomitant]
     Dosage: ONE-HALF DAILY
     Route: 048
  12. TESSALON [Concomitant]
     Dosage: 100 MG, TID
     Route: 048
  13. YASMIN [Suspect]
     Indication: CONTRACEPTION
     Dosage: UNK
     Dates: start: 20061116, end: 20080629
  14. FEXOFENADINE [Concomitant]
     Dosage: 180 MG, 1 TABLET EVERY DAY
  15. LEVAQUIN [Concomitant]
     Dosage: 750 MG, UNK
     Route: 042
     Dates: start: 20100412
  16. SYMBICORT [Concomitant]
     Dosage: UNK
     Dates: start: 20100413
  17. RACEMIC EPINEPHRINE [Concomitant]
     Dosage: UNK
     Dates: start: 20100407
  18. BENZONATATE [Concomitant]
     Dosage: 100 MG, TID
     Route: 048
  19. M.V.I. [Concomitant]
  20. ADDERALL 5 [Concomitant]
  21. SOLU-MEDROL [Concomitant]
     Dosage: 125 MG, UNK
     Route: 042
     Dates: start: 20100412
  22. SINGULAIR [Concomitant]
     Dosage: 10 MG, UNK
  23. EPIPEN [Concomitant]
     Dosage: 0.3 MG, USED AS DIRECTED
  24. ALBUTEROL [Concomitant]
     Dosage: 2 PUFFS
  25. D-AMPHETAMINE SALT COM XR [Concomitant]
     Dosage: 20 MG, 1 EVERY DAY
     Route: 048
  26. QVAR 40 [Concomitant]
     Dosage: 40 ?G, 2 PUFFS
  27. PREVACID [Concomitant]
     Dosage: 15 MG, BID
     Route: 048
  28. MEDROL [Concomitant]
     Dosage: 4 MG, AS PRESCRIBED
     Route: 048
     Dates: start: 20100401
  29. DUONEB [Concomitant]
     Dosage: UNK
     Dates: start: 20100412
  30. DROSPIRENONE AND ETHINYL ESTRADIOL [Suspect]
     Indication: CONTRACEPTION
     Dosage: UNK
     Dates: start: 20080720, end: 20090317
  31. YAZ [Suspect]
     Indication: CONTRACEPTION
     Dosage: UNK
     Dates: start: 20090411, end: 20100401
  32. FLUTICASONE FUROATE [Concomitant]
     Dosage: 2 SPRAYS IN EACH NOSTRIL
  33. FISH OIL [Concomitant]
  34. LOVENOX [Concomitant]
     Dosage: UNK
     Dates: start: 20100412
  35. FLOVENT [Concomitant]
     Dosage: UNK
     Dates: start: 20100412

REACTIONS (8)
  - GALLBLADDER DISORDER [None]
  - PAIN [None]
  - CHOLECYSTITIS CHRONIC [None]
  - ASTHMA [None]
  - ABDOMINAL PAIN [None]
  - VOMITING [None]
  - NAUSEA [None]
  - DIARRHOEA [None]
